FAERS Safety Report 6237846-3 (Version None)
Quarter: 2009Q2

REPORT INFORMATION
  Report Type: 
  Country: None (occurrence: None)
  Receive Date: 20090617
  Receipt Date: 20090615
  Transmission Date: 20091009
  Serious: Yes (Hospitalization)
  Sender: FDA-Public Use
  Company Number: SP02429

PATIENT
  Age: 77 Year
  Sex: Female

DRUGS (4)
  1. VISICOL [Suspect]
     Indication: BOWEL PREPARATION
     Dosage: ORAL
     Route: 048
     Dates: start: 20090101, end: 20090101
  2. VISICOL [Suspect]
     Indication: COLONOSCOPY
     Dosage: ORAL
     Route: 048
     Dates: start: 20090101, end: 20090101
  3. SODIUM PICOSULFATE [Concomitant]
  4. AMLODIPINE [Concomitant]

REACTIONS (5)
  - ANAEMIA [None]
  - ANOREXIA [None]
  - BLOOD CREATININE INCREASED [None]
  - BLOOD UREA INCREASED [None]
  - MALAISE [None]
